FAERS Safety Report 23237215 (Version 1)
Quarter: 2023Q4

REPORT INFORMATION
  Report Type: Spontaneous
  Country: US (occurrence: None)
  Receive Date: 20231128
  Receipt Date: 20231128
  Transmission Date: 20240110
  Serious: Yes (Other)
  Sender: FDA-Public Use
  Company Number: None

PATIENT
  Age: 68 Year
  Sex: Female

DRUGS (1)
  1. TERIFLUNOMIDE [Suspect]
     Active Substance: TERIFLUNOMIDE
     Dosage: FREQUENCY : DAILY;?

REACTIONS (7)
  - Headache [None]
  - Dizziness [None]
  - Eye disorder [None]
  - Nausea [None]
  - Uterine cancer [None]
  - Hysterectomy [None]
  - Therapy cessation [None]
